FAERS Safety Report 12066773 (Version 1)
Quarter: 2016Q1

REPORT INFORMATION
  Report Type: Spontaneous
  Country: FR (occurrence: FR)
  Receive Date: 20160211
  Receipt Date: 20160211
  Transmission Date: 20160526
  Serious: Yes (Hospitalization)
  Sender: FDA-Public Use
  Company Number: FR-GE HEALTHCARE MEDICAL DIAGNOSTICS-VISP-PR-1602S-0038

PATIENT
  Age: 81 Year
  Sex: Female

DRUGS (11)
  1. ANGIOX [Suspect]
     Active Substance: BIVALIRUDIN
     Route: 042
     Dates: start: 20151221, end: 20151221
  2. NEURONTIN [Concomitant]
     Active Substance: GABAPENTIN
  3. KARDEGIC [Suspect]
     Active Substance: ASPIRIN LYSINE
     Route: 042
     Dates: start: 20151221, end: 20151221
  4. IMOVANE [Concomitant]
     Active Substance: ZOPICLONE
  5. DENTSIEL [Concomitant]
  6. AMLOR [Concomitant]
     Active Substance: AMLODIPINE BESYLATE
  7. VISIPAQUE [Suspect]
     Active Substance: IODIXANOL
     Indication: DIAGNOSTIC PROCEDURE
  8. HEPARIN SODIUM. [Suspect]
     Active Substance: HEPARIN SODIUM
     Route: 042
     Dates: start: 20151221, end: 20151221
  9. BIPRETERAX [Concomitant]
     Active Substance: INDAPAMIDE\PERINDOPRIL
  10. VISIPAQUE [Suspect]
     Active Substance: IODIXANOL
     Indication: ACUTE CORONARY SYNDROME
     Route: 013
     Dates: start: 20151221, end: 20151221
  11. TICAGRELOR [Suspect]
     Active Substance: TICAGRELOR
     Dosage: DOSE NOT REPORTED
     Route: 048
     Dates: start: 20151221, end: 20151221

REACTIONS (3)
  - Anaemia [Recovering/Resolving]
  - Purpura [Recovered/Resolved]
  - Rectal haemorrhage [Recovered/Resolved]

NARRATIVE: CASE EVENT DATE: 20151221
